FAERS Safety Report 16838276 (Version 2)
Quarter: 2019Q4

REPORT INFORMATION
  Report Type: Report from Study
  Country: None (occurrence: GR)
  Receive Date: 20190923
  Receipt Date: 20191108
  Transmission Date: 20200122
  Serious: Yes (Other)
  Sender: FDA-Public Use
  Company Number: GR-ABBVIE-19K-066-2935568-00

PATIENT
  Sex: Male

DRUGS (7)
  1. MADOPAR [Concomitant]
     Active Substance: BENSERAZIDE HYDROCHLORIDE\LEVODOPA
     Indication: PARKINSON^S DISEASE
     Dosage: (375+75)MG/ONCE DAILY, UPON PUMP^S SHUT DOWN
     Route: 048
  2. STILNOX [Concomitant]
     Active Substance: ZOLPIDEM TARTRATE
     Indication: SEDATIVE THERAPY
     Route: 048
  3. DUODOPA [Suspect]
     Active Substance: CARBIDOPA\LEVODOPA
     Indication: PARKINSON^S DISEASE
     Dosage: MORNING DOSE: 12ML; CONTINUOUS RATE: 6.1ML/H; EXTRA DOSE: 3.5ML
     Route: 050
     Dates: start: 201311
  4. LEPONEX [Concomitant]
     Active Substance: CLOZAPINE
     Indication: HALLUCINATION
     Route: 048
  5. UROREC [Concomitant]
     Active Substance: SILODOSIN
     Indication: BENIGN PROSTATIC HYPERPLASIA
     Route: 048
  6. EFEXOR [Concomitant]
     Active Substance: VENLAFAXINE HYDROCHLORIDE
     Indication: DEPRESSION
     Route: 048
  7. NOZINAN [Concomitant]
     Active Substance: LEVOMEPROMAZINE
     Indication: HALLUCINATION
     Route: 048

REACTIONS (3)
  - Blood pressure decreased [Recovered/Resolved]
  - Bedridden [Recovered/Resolved]
  - Communication disorder [Not Recovered/Not Resolved]
